FAERS Safety Report 23760998 (Version 2)
Quarter: 2024Q2

REPORT INFORMATION
  Report Type: Report from Study
  Country: IT (occurrence: IT)
  Receive Date: 20240419
  Receipt Date: 20240429
  Transmission Date: 20240715
  Serious: Yes (Hospitalization, Other)
  Sender: FDA-Public Use
  Company Number: IT-SA-SAC20240412001029

PATIENT
  Age: 47 Year
  Sex: Male
  Weight: 75 kg

DRUGS (7)
  1. BELUMOSUDIL MESYLATE [Suspect]
     Active Substance: BELUMOSUDIL MESYLATE
     Indication: Chronic graft versus host disease
     Dosage: UNK
     Route: 048
     Dates: start: 20231117, end: 20240410
  2. BELUMOSUDIL MESYLATE [Suspect]
     Active Substance: BELUMOSUDIL MESYLATE
     Dosage: 200 MG, QD
     Route: 048
     Dates: start: 20240419
  3. RUXOLITINIB [Suspect]
     Active Substance: RUXOLITINIB
     Indication: Chronic graft versus host disease
     Dosage: 5 MG, QD
     Route: 048
     Dates: start: 20220315, end: 20240419
  4. NODIGAP [Concomitant]
     Indication: Vitamin supplementation
     Dosage: 20000 IU, QW
     Route: 048
     Dates: start: 20230922
  5. BACTRIM [Concomitant]
     Active Substance: SULFAMETHOXAZOLE\TRIMETHOPRIM
     Indication: Antibiotic prophylaxis
     Dosage: 960 MG, TIW
     Route: 048
     Dates: start: 20200506
  6. ACYCLOVIR [Concomitant]
     Active Substance: ACYCLOVIR
     Indication: Antiviral prophylaxis
     Dosage: 800 MG, TIW
     Route: 048
     Dates: start: 20200417
  7. CARDIOASPIRINA [Concomitant]
     Active Substance: ASPIRIN
     Indication: Thrombosis
     Dosage: 100 MG
     Route: 048
     Dates: start: 20240411

REACTIONS (6)
  - Retinal detachment [Recovering/Resolving]
  - Retinal artery occlusion [Recovering/Resolving]
  - Blindness unilateral [Recovering/Resolving]
  - Amaurosis [Recovering/Resolving]
  - Vertigo [Recovering/Resolving]
  - Dysphonia [Recovering/Resolving]

NARRATIVE: CASE EVENT DATE: 20240409
